FAERS Safety Report 23108955 (Version 1)
Quarter: 2023Q4

REPORT INFORMATION
  Report Type: Spontaneous
  Country: US (occurrence: None)
  Receive Date: 20231024
  Receipt Date: 20231024
  Transmission Date: 20240110
  Serious: Yes (Life-Threatening, Hospitalization)
  Sender: FDA-Public Use
  Company Number: None

PATIENT
  Age: 81 Year
  Sex: Male
  Weight: 100 kg

DRUGS (1)
  1. DAPTOMYCIN [Suspect]
     Active Substance: DAPTOMYCIN
     Dosage: OTHER STRENGTH : 500MG/VIL;?
     Dates: start: 20221207, end: 20221219

REACTIONS (9)
  - Dyspnoea [None]
  - Lethargy [None]
  - Fatigue [None]
  - Acute on chronic liver failure [None]
  - Toxicity to various agents [None]
  - Renal failure [None]
  - Sepsis [None]
  - Cardiac failure [None]
  - Therapy cessation [None]

NARRATIVE: CASE EVENT DATE: 20221227
